FAERS Safety Report 4987866-1 (Version None)
Quarter: 2006Q2

REPORT INFORMATION
  Report Type: 
  Country: None (occurrence: None)
  Receive Date: 20060501
  Receipt Date: 20050908
  Transmission Date: 20061013
  Serious: Yes (Life-Threatening, Hospitalization)
  Sender: FDA-Public Use
  Company Number: BE-BRISTOL-MYERS SQUIBB COMPANY-13112511

PATIENT
  Age: 61 Year
  Sex: Female

DRUGS (15)
  1. ERBITUX [Suspect]
     Indication: SQUAMOUS CELL CARCINOMA
     Dosage: ON 31-AUG-2005 MOST RECENT INFUSION (8TH INFUSION). DELAYED.
     Route: 041
     Dates: start: 20050712
  2. CISPLATIN [Suspect]
     Indication: SQUAMOUS CELL CARCINOMA
     Dosage: ON 23-AUG-2005-MOST RECENT INFUSION (3RD INFUSION).
     Route: 042
     Dates: start: 20050712
  3. FLUOROURACIL [Suspect]
     Indication: SQUAMOUS CELL CARCINOMA
     Dosage: ON 28-AUG-2005 MOST RECENT INFUSION (3RD INFUSION).
     Route: 042
     Dates: start: 20050712
  4. WARFARIN SODIUM [Concomitant]
  5. DILTIAZEM HCL [Concomitant]
  6. PANTOPRAZOLE [Concomitant]
  7. SIMVASTATIN [Concomitant]
  8. DUOVENT [Concomitant]
  9. ONDANSETRON [Concomitant]
  10. METHYLPREDNISOLONE 4MG TAB [Concomitant]
  11. ALIZAPRIDE [Concomitant]
  12. BLOOD TRANSFUSION [Concomitant]
  13. LEVOFLOXACIN [Concomitant]
  14. DOMPERIDONE [Concomitant]
  15. FUROSEMIDE [Concomitant]

REACTIONS (4)
  - FATIGUE [None]
  - HYPOKALAEMIA [None]
  - HYPOMAGNESAEMIA [None]
  - HYPOPHOSPHATAEMIA [None]
